FAERS Safety Report 8069028-7 (Version None)
Quarter: 2012Q1

REPORT INFORMATION
  Report Type: 
  Country: None (occurrence: None)
  Receive Date: 20120125
  Receipt Date: 20120121
  Transmission Date: 20120608
  Serious: No
  Sender: FDA-Public Use
  Company Number: US-TEVA-318920USA

PATIENT
  Sex: Female
  Weight: 51.302 kg

DRUGS (2)
  1. PLAN B ONE-STEP [Suspect]
     Indication: POST COITAL CONTRACEPTION
     Dosage: 1.5 MILLIGRAM;
     Route: 048
     Dates: start: 20120109, end: 20120109
  2. BEYAZ [Concomitant]
     Indication: CONTRACEPTION
     Route: 048
     Dates: start: 20110101

REACTIONS (4)
  - ABDOMINAL PAIN LOWER [None]
  - NAUSEA [None]
  - VAGINAL DISCHARGE [None]
  - DIZZINESS [None]
